FAERS Safety Report 13463081 (Version 1)
Quarter: 2017Q2

REPORT INFORMATION
  Report Type: Spontaneous
  Country: US (occurrence: US)
  Receive Date: 20170420
  Receipt Date: 20170420
  Transmission Date: 20170830
  Serious: No
  Sender: FDA-Public Use
  Company Number: US-CELGENEUS-USA-20170403800

PATIENT
  Sex: Female

DRUGS (2)
  1. OTEZLA [Suspect]
     Active Substance: APREMILAST
     Indication: PSORIATIC ARTHROPATHY
     Dosage: 60 MILLIGRAM
     Route: 048
  2. LISINOPRIL. [Concomitant]
     Active Substance: LISINOPRIL
     Indication: BLOOD PRESSURE MEASUREMENT
     Route: 065

REACTIONS (6)
  - Pain [Recovering/Resolving]
  - Arthralgia [Recovering/Resolving]
  - Throat tightness [Recovering/Resolving]
  - Muscle tightness [Recovering/Resolving]
  - Back pain [Recovering/Resolving]
  - Muscle spasms [Recovering/Resolving]
